FAERS Safety Report 25735418 (Version 1)
Quarter: 2025Q3

REPORT INFORMATION
  Report Type: Spontaneous
  Country: US (occurrence: None)
  Receive Date: 20250827
  Receipt Date: 20250827
  Transmission Date: 20251021
  Serious: Yes (Other)
  Sender: FDA-CTU
  Company Number: None

PATIENT
  Age: 38 Year
  Sex: Female
  Weight: 58.5 kg

DRUGS (5)
  1. MISOPROSTOL [Suspect]
     Active Substance: MISOPROSTOL
     Indication: Abortion missed
     Route: 048
     Dates: start: 20250817, end: 20250817
  2. VITAMIN B COMPLEX [Concomitant]
     Active Substance: CYANOCOBALAMIN\DEXPANTHENOL\NIACINAMIDE\PYRIDOXINE HYDROCHLORIDE\RIBOFLAVIN 5^-PHOSPHATE SODIUM\THIA
  3. VITAMIN D [Concomitant]
     Active Substance: VITAMIN D NOS
  4. ZINC [Concomitant]
     Active Substance: ZINC
  5. BEEF LIVER [Concomitant]
     Active Substance: BEEF LIVER

REACTIONS (4)
  - Abdominal pain upper [None]
  - Flatulence [None]
  - Diarrhoea [None]
  - Arthralgia [None]

NARRATIVE: CASE EVENT DATE: 20250826
